FAERS Safety Report 5355624-4 (Version None)
Quarter: 2007Q2

REPORT INFORMATION
  Report Type: 
  Country: None (occurrence: None)
  Receive Date: 20070613
  Receipt Date: 20070612
  Transmission Date: 20071010
  Serious: Yes (Hospitalization)
  Sender: FDA-Public Use
  Company Number: B0474755A

PATIENT
  Age: 88 Year
  Sex: Female
  Weight: 66 kg

DRUGS (10)
  1. ZELITREX [Suspect]
     Indication: HERPES ZOSTER
     Dosage: 1G THREE TIMES PER DAY
     Route: 048
     Dates: start: 20070515, end: 20070521
  2. TEGRETOL [Suspect]
     Dosage: 200MG TWICE PER DAY
     Route: 048
     Dates: start: 20070515, end: 20070519
  3. SERESTA [Concomitant]
     Dosage: 50MG PER DAY
     Route: 048
  4. ISOPTINE LP 240 MG [Concomitant]
     Indication: ESSENTIAL HYPERTENSION
     Dosage: 240MG PER DAY
     Route: 048
  5. LASIX [Concomitant]
     Indication: ESSENTIAL HYPERTENSION
     Dosage: 40MG PER DAY
     Route: 048
  6. IRBESARTAN [Concomitant]
     Indication: ESSENTIAL HYPERTENSION
     Dosage: 75MG PER DAY
     Route: 048
  7. DIFFU K [Concomitant]
     Dosage: 1UNIT TWICE PER DAY
     Route: 065
  8. STRUCTUM [Concomitant]
     Route: 065
  9. KARDEGIC [Concomitant]
     Route: 065
  10. ATARAX [Concomitant]
     Route: 065

REACTIONS (6)
  - ASTHENIA [None]
  - DISORIENTATION [None]
  - DRUG INTERACTION [None]
  - HYPERTENSION [None]
  - NAUSEA [None]
  - VOMITING [None]
